FAERS Safety Report 16081475 (Version 3)
Quarter: 2019Q2

REPORT INFORMATION
  Report Type: Report from Study
  Country: US (occurrence: US)
  Receive Date: 20190316
  Receipt Date: 20190425
  Transmission Date: 20190711
  Serious: No
  Sender: FDA-Public Use
  Company Number: PHEH2019US011342

PATIENT
  Sex: Female

DRUGS (1)
  1. COSENTYX [Suspect]
     Active Substance: SECUKINUMAB
     Indication: PSORIATIC ARTHROPATHY
     Dosage: 150 MG, QW
     Route: 058

REACTIONS (7)
  - Oral disorder [Unknown]
  - Stomatitis [Unknown]
  - Oral pain [Unknown]
  - Throat lesion [Unknown]
  - Fatigue [Unknown]
  - Oropharyngeal pain [Unknown]
  - Lymphadenopathy [Unknown]
